FAERS Safety Report 19912942 (Version 3)
Quarter: 2021Q4

REPORT INFORMATION
  Report Type: Spontaneous
  Country: AT (occurrence: AT)
  Receive Date: 20211004
  Receipt Date: 20211130
  Transmission Date: 20220303
  Serious: Yes (Death, Hospitalization, Other)
  Sender: FDA-Public Use
  Company Number: AT-PFIZER INC-202101159353

PATIENT
  Age: 69 Year
  Sex: Female
  Weight: 46 kg

DRUGS (24)
  1. BUPRENORPHINE [Interacting]
     Active Substance: BUPRENORPHINE
     Indication: Product used for unknown indication
     Route: 065
  2. BUPRENORPHINE [Interacting]
     Active Substance: BUPRENORPHINE
     Dosage: UNK
     Route: 065
  3. LYRICA [Interacting]
     Active Substance: PREGABALIN
     Indication: Product used for unknown indication
     Dosage: UNK
     Route: 065
  4. LYRICA [Interacting]
     Active Substance: PREGABALIN
     Dosage: 2 DF, UNK
     Route: 065
  5. LYRICA [Interacting]
     Active Substance: PREGABALIN
     Dosage: 1 DF, UNK
     Route: 065
  6. LYRICA [Interacting]
     Active Substance: PREGABALIN
     Dosage: 2 DF, UNK
     Route: 065
     Dates: start: 202108
  7. LYRICA [Interacting]
     Active Substance: PREGABALIN
     Dosage: 1 DF, UNK
     Route: 065
     Dates: end: 202108
  8. BUPRENORPHINE [Interacting]
     Active Substance: BUPRENORPHINE
     Indication: Pain
     Dosage: UNK
     Route: 062
     Dates: end: 202108
  9. ZOFRAN                             /00955301/ [Concomitant]
     Indication: Vomiting
     Dosage: UNK
     Route: 065
  10. ZOFRAN                             /00955301/ [Concomitant]
     Indication: Nausea
  11. PANTOLOC                           /01263204/ [Concomitant]
     Dosage: UNK
     Route: 065
  12. POLYETHYLENE GLYCOL 3350\POTASSIUM CHLORIDE\SODIUM BICARBONATE\SODIUM [Concomitant]
     Active Substance: POLYETHYLENE GLYCOL 3350\POTASSIUM CHLORIDE\SODIUM BICARBONATE\SODIUM CHLORIDE
     Dosage: UNK
     Route: 065
  13. SUCRALAN [Concomitant]
     Dosage: UNK
     Route: 065
  14. FUROSEMIDE\SPIRONOLACTONE [Concomitant]
     Active Substance: FUROSEMIDE\SPIRONOLACTONE
     Dosage: UNK
     Route: 065
  15. URSODIOL [Concomitant]
     Active Substance: URSODIOL
     Dosage: UNK
     Route: 065
  16. FUROSEMIDE [Concomitant]
     Active Substance: FUROSEMIDE
     Dosage: UNK
     Route: 065
  17. DIETARY SUPPLEMENT [Concomitant]
     Active Substance: DIETARY SUPPLEMENT
     Dosage: UNK
     Route: 065
  18. FRAGMIN [Concomitant]
     Active Substance: DALTEPARIN SODIUM
     Dosage: UNK
     Route: 065
  19. BISOPROLOL FUMARATE [Concomitant]
     Active Substance: BISOPROLOL FUMARATE
     Dosage: UNK
     Route: 065
  20. CEFUROXIM SANDOZ                   /00454602/ [Concomitant]
     Dosage: UNK
     Route: 065
  21. PLAVIX [Concomitant]
     Active Substance: CLOPIDOGREL BISULFATE
     Dosage: UNK
     Route: 065
  22. FRESUBIN YOCREME [Concomitant]
     Dosage: UNK
     Route: 065
  23. LEVOTHYROXINE SODIUM [Concomitant]
     Active Substance: LEVOTHYROXINE SODIUM
     Dosage: UNK
     Route: 065
  24. DIPYRONE [Concomitant]
     Active Substance: DIPYRONE
     Dosage: UNK
     Route: 065

REACTIONS (9)
  - Nosocomial infection [Fatal]
  - Cognitive disorder [Unknown]
  - Drug interaction [Unknown]
  - Hallucination [Unknown]
  - Confusional state [Unknown]
  - Delirium [Unknown]
  - Visual impairment [Unknown]
  - Rash [Unknown]
  - Somnolence [Unknown]

NARRATIVE: CASE EVENT DATE: 20210101
